FAERS Safety Report 7644972-0 (Version None)
Quarter: 2011Q3

REPORT INFORMATION
  Report Type: 
  Country: None (occurrence: None)
  Receive Date: 20110725
  Receipt Date: 20110711
  Transmission Date: 20111222
  Serious: Yes (Hospitalization)
  Sender: FDA-Public Use
  Company Number: 1000021838

PATIENT
  Age: 71 Year
  Sex: Male
  Weight: 64 kg

DRUGS (7)
  1. SPIRIVA [Concomitant]
  2. BROMAZEPAM (BROMAZEPAM) [Concomitant]
  3. GLIFAGE (METFORMIN) [Concomitant]
  4. ROFLUMILAST (ROFLUMILAST) (TABLETS) [Suspect]
     Indication: CHRONIC OBSTRUCTIVE PULMONARY DISEASE
     Dosage: 1 DE (1 DOSAGE FORMS,1 IN 1 D), ORAL
     Route: 048
     Dates: start: 20110616, end: 20110619
  5. SERETIDE (SALMETEROL, FLUTICASONE) (SALMETEROL, FLUTICASONE) [Concomitant]
  6. ROFLUMILAST (ROFLUMILAST) (TABLETS) [Suspect]
     Indication: CHRONIC OBSTRUCTIVE PULMONARY DISEASE
     Dosage: 1 DF (1 DOSAGE FORMS,1 IN 1 D), ORAL
     Route: 048
     Dates: start: 20110709
  7. BUP (BUPROPION) [Concomitant]

REACTIONS (5)
  - ABDOMINAL PAIN [None]
  - HEADACHE [None]
  - DIARRHOEA [None]
  - MYALGIA [None]
  - VOMITING [None]
